FAERS Safety Report 5441880-0 (Version None)
Quarter: 2007Q3

REPORT INFORMATION
  Report Type: 
  Country: None (occurrence: None)
  Receive Date: 20070904
  Receipt Date: 20070824
  Transmission Date: 20080115
  Serious: Yes (Other)
  Sender: FDA-Public Use
  Company Number: US-JNJFOC-20070106552

PATIENT
  Sex: Female
  Weight: 63.5 kg

DRUGS (10)
  1. DURAGESIC-100 [Suspect]
     Indication: BACK PAIN
     Dosage: 36-50 HOURS
     Route: 062
  2. TOPAX [Concomitant]
     Indication: ANXIETY
     Route: 048
  3. EFFEXOR XR [Concomitant]
     Indication: ANXIETY
     Route: 048
  4. PREMARIN [Concomitant]
     Indication: HORMONE REPLACEMENT THERAPY
     Route: 048
  5. DIAZEPAM [Concomitant]
     Indication: TREMOR
     Route: 048
  6. DIAZEPAM [Concomitant]
     Indication: ANXIETY
     Route: 048
  7. TOPAMAX [Concomitant]
     Indication: TREMOR
     Route: 048
  8. PERCOCET [Concomitant]
     Indication: PAIN
     Route: 048
  9. PHENERGAN N [Concomitant]
     Indication: NAUSEA
     Dosage: AS NEEDED
     Route: 048
  10. ZANAFLEX [Concomitant]
     Indication: MUSCLE SPASMS
     Route: 048

REACTIONS (5)
  - DRY MOUTH [None]
  - LOOSE TOOTH [None]
  - MUSCLE SPASMS [None]
  - ORAL BACTERIAL INFECTION [None]
  - TOOTH ABSCESS [None]
